FAERS Safety Report 19357174 (Version 3)
Quarter: 2021Q3

REPORT INFORMATION
  Report Type: Spontaneous
  Country: US (occurrence: US)
  Receive Date: 20210601
  Receipt Date: 20210813
  Transmission Date: 20211014
  Serious: No
  Sender: FDA-Public Use
  Company Number: US-GLAXOSMITHKLINE-US2021113339

PATIENT
  Sex: Female

DRUGS (3)
  1. ZEJULA [Suspect]
     Active Substance: NIRAPARIB
     Dosage: 200 MG, QD
     Route: 048
  2. ZEJULA [Suspect]
     Active Substance: NIRAPARIB
     Indication: OVARIAN CANCER
     Dosage: 200 MG, QD
     Dates: start: 202102
  3. ZEJULA [Suspect]
     Active Substance: NIRAPARIB
     Dosage: 200 MG, QD
     Route: 048
     Dates: start: 20210508

REACTIONS (12)
  - Agitation [Unknown]
  - Nausea [Not Recovered/Not Resolved]
  - Fatigue [Unknown]
  - Constipation [Not Recovered/Not Resolved]
  - Tachycardia [Recovering/Resolving]
  - Appetite disorder [Unknown]
  - Heart rate increased [Not Recovered/Not Resolved]
  - Asthenia [Unknown]
  - Malaise [Unknown]
  - Mania [Unknown]
  - Vomiting [Unknown]
  - Red blood cell count decreased [Unknown]
